FAERS Safety Report 5384763-7 (Version None)
Quarter: 2007Q3

REPORT INFORMATION
  Report Type: 
  Country: None (occurrence: None)
  Receive Date: 20070706
  Receipt Date: 20070604
  Transmission Date: 20080115
  Serious: No
  Sender: FDA-Public Use
  Company Number: PHEH2007US07087

PATIENT
  Sex: 0

DRUGS (1)
  1. TEKTURNA [Suspect]

REACTIONS (2)
  - ANGINA PECTORIS [None]
  - CARDIAC STRESS TEST NORMAL [None]
